FAERS Safety Report 10390648 (Version 1)
Quarter: 2014Q3

REPORT INFORMATION
  Report Type: Spontaneous
  Country: BR (occurrence: BR)
  Receive Date: 20140818
  Receipt Date: 20140818
  Transmission Date: 20150326
  Serious: Yes (Death)
  Sender: FDA-Public Use
  Company Number: BR-JNJFOC-20140805558

PATIENT

DRUGS (1)
  1. LEUSTATIN [Suspect]
     Active Substance: CLADRIBINE
     Indication: LEUKAEMIA
     Route: 042

REACTIONS (1)
  - Death [Fatal]
